FAERS Safety Report 8839365 (Version 3)
Quarter: 2013Q2

REPORT INFORMATION
  Report Type: Spontaneous
  Country: DE (occurrence: DE)
  Receive Date: 20121015
  Receipt Date: 20130426
  Transmission Date: 20140414
  Serious: Yes (Hospitalization, Other)
  Sender: FDA-Public Use
  Company Number: DE-JNJFOC-20121005109

PATIENT
  Age: 25 Year
  Sex: Female
  Weight: 92.3 kg

DRUGS (4)
  1. REMICADE [Suspect]
     Indication: CROHN^S DISEASE
     Route: 042
     Dates: start: 20120614
  2. REMICADE [Suspect]
     Indication: CROHN^S DISEASE
     Route: 042
     Dates: start: 201004, end: 201112
  3. CARBAMAZEPINE [Concomitant]
     Indication: EPILEPSY
     Dosage: DOSE: ^600-300-300-600^ (UNITS UNSPECIFIED) FREQUENCY: 2-1-1-2 DOSE.
     Route: 065
     Dates: start: 2010
  4. ALL OTHER THERAPEUTICS [Concomitant]
     Route: 065

REACTIONS (2)
  - Crohn^s disease [Recovered/Resolved]
  - Maternal exposure before pregnancy [Recovered/Resolved]
